FAERS Safety Report 6052257-1 (Version None)
Quarter: 2009Q1

REPORT INFORMATION
  Report Type: 
  Country: None (occurrence: None)
  Receive Date: 20090121
  Receipt Date: 20090105
  Transmission Date: 20090719
  Serious: Yes (Other)
  Sender: FDA-Public Use
  Company Number: 2009S1000280

PATIENT
  Age: 26 Year
  Sex: Female

DRUGS (6)
  1. AZATHIOPRINE [Suspect]
     Indication: RENAL TRANSPLANT
  2. CYCLOSPORINE [Suspect]
     Indication: RENAL TRANSPLANT
  3. CO-TRIMOXAZOLE (CO-TRIMOXAZOLE) [Suspect]
     Indication: DRUG USE FOR UNKNOWN INDICATION
  4. PREDNISOLONE [Suspect]
     Indication: DRUG USE FOR UNKNOWN INDICATION
  5. CYCLOPHOSPHAMIDE [Concomitant]
  6. MYCOPHENOLATE MOFETIL [Concomitant]

REACTIONS (8)
  - BACTERIAL DISEASE CARRIER [None]
  - BLOOD CREATININE INCREASED [None]
  - BLOOD LACTATE DEHYDROGENASE INCREASED [None]
  - LEUKOPENIA [None]
  - PERITONITIS BACTERIAL [None]
  - RED BLOOD CELL SCHISTOCYTES PRESENT [None]
  - RENAL IMPAIRMENT [None]
  - THROMBOTIC MICROANGIOPATHY [None]
